FAERS Safety Report 4406241-1 (Version None)
Quarter: 2004Q3

REPORT INFORMATION
  Report Type: 
  Country: None (occurrence: None)
  Receive Date: 20040716
  Receipt Date: 20040705
  Transmission Date: 20050211
  Serious: No
  Sender: FDA-Public Use
  Company Number: 2004GB01650

PATIENT
  Age: 65 Year
  Sex: Female

DRUGS (2)
  1. OMEPRAZOLE [Suspect]
     Indication: GASTRITIS
     Dosage: 20 MG BID PO
     Route: 048
     Dates: start: 20031001, end: 20040501
  2. FLUOXETINE [Concomitant]

REACTIONS (2)
  - CUTANEOUS LUPUS ERYTHEMATOSUS [None]
  - THERAPY NON-RESPONDER [None]
